FAERS Safety Report 6678175-3 (Version None)
Quarter: 2010Q2

REPORT INFORMATION
  Report Type: 
  Country: None (occurrence: None)
  Receive Date: 20100409
  Receipt Date: 20100409
  Transmission Date: 20101027
  Serious: No
  Sender: FDA-Public Use
  Company Number: None

PATIENT
  Sex: Female
  Weight: 64.8644 kg

DRUGS (1)
  1. FLUOXETINE [Suspect]
     Indication: DEPRESSION
     Dosage: 10MG DAILY PO
     Route: 048
     Dates: start: 20100403, end: 20100405

REACTIONS (4)
  - NIGHTMARE [None]
  - PRODUCT COLOUR ISSUE [None]
  - PRODUCT SIZE ISSUE [None]
  - PRODUCT SUBSTITUTION ISSUE [None]
